FAERS Safety Report 6338751-4 (Version None)
Quarter: 2009Q3

REPORT INFORMATION
  Report Type: 
  Country: None (occurrence: None)
  Receive Date: 20090903
  Receipt Date: 20090825
  Transmission Date: 20100115
  Serious: Yes (Other)
  Sender: FDA-Public Use
  Company Number: FR-JNJFOC-20090808985

PATIENT
  Age: 46 Year
  Sex: Female

DRUGS (1)
  1. FENTANYL [Suspect]
     Indication: ORTHOPEDIC PROCEDURE
     Route: 062

REACTIONS (1)
  - ANAPHYLACTIC REACTION [None]
